FAERS Safety Report 21141003 (Version 1)
Quarter: 2022Q3

REPORT INFORMATION
  Report Type: Spontaneous
  Country: IT (occurrence: IT)
  Receive Date: 20220728
  Receipt Date: 20220728
  Transmission Date: 20221027
  Serious: Yes (Hospitalization)
  Sender: FDA-Public Use
  Company Number: None

PATIENT
  Age: 63 Year
  Sex: Male

DRUGS (1)
  1. YERVOY [Suspect]
     Active Substance: IPILIMUMAB
     Indication: Malignant melanoma
     Dosage: 3MG/KG OGNI 3 SETTIMANE
     Dates: start: 20191011, end: 20191129

REACTIONS (1)
  - Lymphocytic hypophysitis [Recovered/Resolved]

NARRATIVE: CASE EVENT DATE: 20191219
